FAERS Safety Report 10519646 (Version 4)
Quarter: 2016Q1

REPORT INFORMATION
  Report Type: Spontaneous
  Country: US (occurrence: US)
  Receive Date: 20141015
  Receipt Date: 20160115
  Transmission Date: 20160525
  Serious: No
  Sender: FDA-Public Use
  Company Number: US-PFIZER INC-2014283183

PATIENT
  Age: 75 Year
  Sex: Female
  Weight: 84 kg

DRUGS (7)
  1. LYRICA [Suspect]
     Active Substance: PREGABALIN
     Indication: FIBROMYALGIA
     Dosage: 200 MG, 2X/DAY
     Route: 048
  2. ATORVASTATIN [Concomitant]
     Active Substance: ATORVASTATIN
     Dosage: 40 MG, 1X/DAY
  3. DULOXETINE HCL [Concomitant]
     Active Substance: DULOXETINE HYDROCHLORIDE
     Dosage: 60 MG, 3X/DAY
  4. FUROSEMIDE. [Concomitant]
     Active Substance: FUROSEMIDE
     Indication: SWELLING
     Dosage: 20 MG, AS NEEDED
  5. LEVOTHYROXINE. [Concomitant]
     Active Substance: LEVOTHYROXINE
     Dosage: 75 MG, 1X/DAY (ONCE A DAY, IN THE MORNING)
  6. METOPROLOL SUCCINATE. [Concomitant]
     Active Substance: METOPROLOL SUCCINATE
     Indication: BLOOD PRESSURE ABNORMAL
     Dosage: 25 MG, 1X/DAY
     Route: 048
     Dates: start: 1990
  7. ALLOPURINOL. [Concomitant]
     Active Substance: ALLOPURINOL
     Indication: GOUT
     Dosage: 100 MG, 1X/DAY
     Dates: start: 2014

REACTIONS (11)
  - Malaise [Recovering/Resolving]
  - Pruritus [Recovered/Resolved]
  - Burning sensation [Unknown]
  - Apathy [Unknown]
  - Insomnia [Recovered/Resolved]
  - Pain in extremity [Unknown]
  - Pain [Unknown]
  - Drug effect incomplete [Recovered/Resolved]
  - Fatigue [Recovering/Resolving]
  - Asthenia [Unknown]
  - Depressed mood [Unknown]

NARRATIVE: CASE EVENT DATE: 201510
